FAERS Safety Report 6159800-2 (Version None)
Quarter: 2009Q2

REPORT INFORMATION
  Report Type: 
  Country: None (occurrence: None)
  Receive Date: 20090420
  Receipt Date: 20090414
  Transmission Date: 20091009
  Serious: Yes (Hospitalization)
  Sender: FDA-Public Use
  Company Number: US-BIOGENIDEC-2008BI034475

PATIENT
  Sex: Female

DRUGS (35)
  1. TYSABRI [Suspect]
     Indication: MULTIPLE SCLEROSIS
     Route: 042
     Dates: start: 20080812, end: 20081022
  2. TYSABRI [Suspect]
     Dates: start: 20050111, end: 20050101
  3. MAXZIDE [Concomitant]
     Indication: DRUG USE FOR UNKNOWN INDICATION
  4. SYNTHROID [Concomitant]
     Indication: DRUG USE FOR UNKNOWN INDICATION
     Dates: end: 20081101
  5. SYNTHROID [Concomitant]
     Dates: start: 20081101
  6. PROTONIX [Concomitant]
     Indication: DRUG USE FOR UNKNOWN INDICATION
  7. FOLIC ACID [Concomitant]
     Indication: DRUG USE FOR UNKNOWN INDICATION
  8. ZANAFLEX [Concomitant]
     Indication: DRUG USE FOR UNKNOWN INDICATION
  9. ENABLEX [Concomitant]
     Indication: DRUG USE FOR UNKNOWN INDICATION
  10. COMPAZINE [Concomitant]
     Indication: DRUG USE FOR UNKNOWN INDICATION
  11. CARAFATE [Concomitant]
     Indication: DRUG USE FOR UNKNOWN INDICATION
  12. TEGRETOL [Concomitant]
     Indication: PAIN
  13. TEGRETOL [Concomitant]
     Indication: TRIGEMINAL NEURALGIA
  14. TEGRETOL [Concomitant]
     Indication: BACK PAIN
  15. XANAX [Concomitant]
     Indication: DRUG USE FOR UNKNOWN INDICATION
  16. XANAX [Concomitant]
  17. VITAMIN B-12 [Concomitant]
     Indication: VITAMIN B12 DEFICIENCY
  18. COLACE [Concomitant]
     Indication: DRUG USE FOR UNKNOWN INDICATION
  19. MIRALAX [Concomitant]
     Indication: DRUG USE FOR UNKNOWN INDICATION
  20. ANUSOL HC [Concomitant]
     Indication: DRUG USE FOR UNKNOWN INDICATION
  21. NYSTATIN [Concomitant]
     Indication: DRUG USE FOR UNKNOWN INDICATION
  22. CYMBALTA [Concomitant]
     Indication: BACK PAIN
     Dates: end: 20081101
  23. CYMBALTA [Concomitant]
     Indication: ARTHRALGIA
     Dates: end: 20081101
  24. CYMBALTA [Concomitant]
     Dates: start: 20081101
  25. CYMBALTA [Concomitant]
     Dates: start: 20081101
  26. AMBIEN [Concomitant]
     Indication: DRUG USE FOR UNKNOWN INDICATION
  27. TYLENOL [Concomitant]
     Indication: DRUG USE FOR UNKNOWN INDICATION
  28. VITAMIN D [Concomitant]
     Indication: VITAMIN D DEFICIENCY
  29. VICODIN HP [Concomitant]
     Indication: BACK PAIN
  30. VICODIN HP [Concomitant]
     Indication: ARTHRALGIA
  31. LIDODERM [Concomitant]
     Indication: BACK PAIN
  32. LIDODERM [Concomitant]
     Indication: ARTHRALGIA
  33. VASOTEC [Concomitant]
     Indication: HYPERTENSION
  34. MORPHINE SULFATE [Concomitant]
     Indication: DRUG USE FOR UNKNOWN INDICATION
  35. POTASSIUM CHLORIDE [Concomitant]
     Indication: DRUG USE FOR UNKNOWN INDICATION
     Dates: end: 20081201

REACTIONS (16)
  - ANAEMIA [None]
  - ARTHRALGIA [None]
  - BACK PAIN [None]
  - BALANCE DISORDER [None]
  - BETA HAEMOLYTIC STREPTOCOCCAL INFECTION [None]
  - FACIAL PALSY [None]
  - FALL [None]
  - HERPES ZOSTER [None]
  - IMMUNE SYSTEM DISORDER [None]
  - JAW DISORDER [None]
  - MULTIPLE SCLEROSIS [None]
  - MULTIPLE SCLEROSIS RELAPSE [None]
  - MUSCULAR WEAKNESS [None]
  - PAIN [None]
  - PITTING OEDEMA [None]
  - POST HERPETIC NEURALGIA [None]
